FAERS Safety Report 13323954 (Version 3)
Quarter: 2017Q2

REPORT INFORMATION
  Report Type: Spontaneous
  Country: DE (occurrence: DE)
  Receive Date: 20170310
  Receipt Date: 20170614
  Transmission Date: 20170830
  Serious: Yes (Life-Threatening, Hospitalization, Other)
  Sender: FDA-Public Use
  Company Number: DE-PFIZER INC-2017100446

PATIENT
  Age: 91 Year
  Sex: Female

DRUGS (8)
  1. PIPERACILLIN AND TAZOBACTAM [Suspect]
     Active Substance: PIPERACILLIN SODIUM\TAZOBACTAM SODIUM
     Indication: PNEUMONIA ASPIRATION
     Dosage: ^4 G/0.5 G^; UNK
  2. NOVALGIN [Concomitant]
     Active Substance: METAMIZOLE SODIUM
     Dosage: 30 GTT, 3X/DAY
  3. HCT [Concomitant]
     Active Substance: HYDROCHLOROTHIAZIDE
     Dosage: 25 MG, 1X/DAY
  4. THYRONAJOD [Concomitant]
     Active Substance: LEVOTHYROXINE SODIUM\POTASSIUM IODIDE
     Dosage: 150 UG, 1X/DAY
  5. DEKRISTOL [Concomitant]
     Active Substance: CHOLECALCIFEROL
     Dosage: 1 DF, WEEKLY
  6. FENTANYL TTS [Concomitant]
     Active Substance: FENTANYL
     Dosage: 25 UG, 3X/DAY
  7. LACTULOSE. [Concomitant]
     Active Substance: LACTULOSE
     Dosage: 10 ML, 2X/DAY
  8. UNACID [Suspect]
     Active Substance: AMPICILLIN SODIUM\SULBACTAM SODIUM
     Indication: PNEUMONIA ASPIRATION
     Dosage: UNK

REACTIONS (1)
  - Hypernatraemia [Not Recovered/Not Resolved]

NARRATIVE: CASE EVENT DATE: 20170224
